FAERS Safety Report 9970570 (Version 1)
Quarter: 2014Q1

REPORT INFORMATION
  Report Type: Spontaneous
  Country: US (occurrence: None)
  Receive Date: 20140305
  Receipt Date: 20140305
  Transmission Date: 20141002
  Serious: Yes (Hospitalization)
  Sender: FDA-Public Use
  Company Number: None

PATIENT
  Age: 70 Year
  Sex: Female
  Weight: 122.47 kg

DRUGS (1)
  1. BACTRIM [Suspect]
     Indication: URINARY TRACT INFECTION
     Dosage: I DON^T RECALL TAKEN BY MOUTH
     Route: 048
     Dates: start: 20131029, end: 20131101

REACTIONS (5)
  - Stevens-Johnson syndrome [None]
  - Renal failure acute [None]
  - Rash generalised [None]
  - Liver disorder [None]
  - Eye disorder [None]
